FAERS Safety Report 4565377-5 (Version None)
Quarter: 2005Q1

REPORT INFORMATION
  Report Type: 
  Country: None (occurrence: None)
  Receive Date: 20050125
  Receipt Date: 20050125
  Transmission Date: 20050727
  Serious: Yes (Life-Threatening, Hospitalization)
  Sender: FDA-Public Use
  Company Number: None

PATIENT
  Age: 71 Year
  Sex: Male
  Weight: 75.8 kg

DRUGS (3)
  1. LISINOPRIL [Suspect]
     Indication: HYPERTENSION
     Dosage: 10 MG DAILY ORAL
     Route: 048
     Dates: start: 20050102, end: 20050109
  2. AMIODARONE HCL [Concomitant]
  3. WARFARIN SODIUM [Concomitant]

REACTIONS (3)
  - ANGIONEUROTIC OEDEMA [None]
  - RESPIRATORY DISORDER [None]
  - SWELLING [None]
